FAERS Safety Report 17773070 (Version 1)
Quarter: 2020Q2

REPORT INFORMATION
  Report Type: Report from Study
  Country: None (occurrence: IT)
  Receive Date: 20200512
  Receipt Date: 20200512
  Transmission Date: 20200714
  Serious: Yes (Other)
  Sender: FDA-Public Use
  Company Number: IT-ABBVIE-20K-083-3401307-00

PATIENT
  Age: 65 Year
  Sex: Female

DRUGS (1)
  1. DUODOPA [Suspect]
     Active Substance: CARBIDOPA\LEVODOPA
     Indication: PARKINSON^S DISEASE
     Dosage: MD: 6+3??CR: 2,3??ED: 3,2
     Route: 050
     Dates: start: 20190211, end: 20200511

REACTIONS (1)
  - Hiatus hernia [Unknown]

NARRATIVE: CASE EVENT DATE: 202005
